FAERS Safety Report 6241060-5 (Version None)
Quarter: 2009Q2

REPORT INFORMATION
  Report Type: 
  Country: None (occurrence: None)
  Receive Date: 20090619
  Receipt Date: 20090619
  Transmission Date: 20091009
  Serious: Yes (Other)
  Sender: FDA-Public Use
  Company Number: None

PATIENT
  Sex: Female
  Weight: 63.5036 kg

DRUGS (1)
  1. FLUOXETINE HCL [Suspect]
     Indication: MAJOR DEPRESSION
     Dosage: 8 MG DAILY ORAL
     Route: 048
     Dates: start: 20080214, end: 20080228

REACTIONS (4)
  - COGNITIVE DISORDER [None]
  - DEPRESSED MOOD [None]
  - IRRITABILITY [None]
  - PRODUCT SUBSTITUTION ISSUE [None]
